FAERS Safety Report 14896242 (Version 1)
Quarter: 2018Q2

REPORT INFORMATION
  Report Type: Spontaneous
  Country: US (occurrence: US)
  Receive Date: 20180515
  Receipt Date: 20180515
  Transmission Date: 20180711
  Serious: No
  Sender: FDA-Public Use
  Company Number: US-ASTRAZENECA-2018SE54783

PATIENT
  Sex: Male

DRUGS (2)
  1. BYDUREON [Suspect]
     Active Substance: EXENATIDE
     Dosage: TRAY
     Route: 065
  2. BYDUREON [Suspect]
     Active Substance: EXENATIDE
     Dosage: PEN
     Route: 065

REACTIONS (3)
  - Injection site injury [Unknown]
  - Circumstance or information capable of leading to medication error [Unknown]
  - Device leakage [Unknown]
